FAERS Safety Report 6611961-4 (Version None)
Quarter: 2010Q1

REPORT INFORMATION
  Report Type: 
  Country: None (occurrence: None)
  Receive Date: 20100302
  Receipt Date: 20100302
  Transmission Date: 20100710
  Serious: No
  Sender: FDA-Public Use
  Company Number: None

PATIENT
  Sex: Male
  Weight: 51.98 kg

DRUGS (4)
  1. VINCRISTINE SULFATE [Suspect]
     Dosage: 6 MG
  2. DEXAMETHASONE [Suspect]
     Dosage: 975 MG
  3. MERCAPTOPURINE [Suspect]
     Dosage: 13800 MG
  4. METHOTREXATE [Suspect]
     Dosage: 450 MG

REACTIONS (1)
  - NEUTROPENIA [None]
